FAERS Safety Report 17117754 (Version 1)
Quarter: 2019Q4

REPORT INFORMATION
  Report Type: Spontaneous
  Country: SE (occurrence: SE)
  Receive Date: 20191205
  Receipt Date: 20191205
  Transmission Date: 20200122
  Serious: Yes (Life-Threatening, Hospitalization, Disabling)
  Sender: FDA-Public Use
  Company Number: SE-MYLANLABS-2019M1119878

PATIENT
  Age: 14 Year
  Sex: Male
  Weight: 55 kg

DRUGS (14)
  1. ABILIFY [Concomitant]
     Active Substance: ARIPIPRAZOLE
     Dosage: UNK
     Dates: start: 2019
  2. THERALEN [Concomitant]
     Active Substance: TRIMEPRAZINE
     Dosage: 0,25 ML VID BEHOV, MAX 1 ML PER DYGN
  3. STESOLID [Concomitant]
     Active Substance: DIAZEPAM
     Dosage: 1 TABLETT VID BEHOV H?GST 2 TABLETTER PER DYGN.
  4. ABILIFY [Concomitant]
     Active Substance: ARIPIPRAZOLE
     Dosage: UNK
     Dates: start: 20161221, end: 2019
  5. OLANZAPINE. [Concomitant]
     Active Substance: OLANZAPINE
     Dosage: UNK
     Dates: start: 20170103, end: 20170129
  6. MELATONIN [Concomitant]
     Active Substance: MELATONIN
  7. RISPERIDONE. [Suspect]
     Active Substance: RISPERIDONE
     Indication: PSYCHOTIC SYMPTOM
     Dosage: 0.25 MILLIGRAM
     Dates: start: 20160628, end: 20160703
  8. ABILIFY [Concomitant]
     Active Substance: ARIPIPRAZOLE
     Dosage: UNK
     Dates: start: 20160620, end: 20161220
  9. OLANZAPINE. [Concomitant]
     Active Substance: OLANZAPINE
     Dosage: UNK
     Dates: start: 20160702, end: 20161224
  10. NOZINAN                            /00038601/ [Concomitant]
     Active Substance: LEVOMEPROMAZINE
     Dosage: UNK
     Dates: start: 20160620, end: 20160701
  11. NOZINAN                            /00038601/ [Concomitant]
     Active Substance: LEVOMEPROMAZINE
     Dosage: UNK
     Dates: start: 20160702, end: 20160703
  12. OLANZAPINE. [Concomitant]
     Active Substance: OLANZAPINE
     Dosage: UNK UNK, PRN
     Dates: start: 20160703
  13. OLANZAPINE. [Concomitant]
     Active Substance: OLANZAPINE
     Dosage: UNK
     Dates: start: 20161225, end: 20161228
  14. OLANZAPINE. [Concomitant]
     Active Substance: OLANZAPINE
     Dosage: UNK
     Dates: start: 20161229, end: 20170102

REACTIONS (6)
  - Staring [Recovered/Resolved with Sequelae]
  - Mydriasis [Recovered/Resolved with Sequelae]
  - Muscle spasms [Recovered/Resolved with Sequelae]
  - Confusional state [Recovered/Resolved with Sequelae]
  - Product prescribing error [Recovered/Resolved with Sequelae]
  - Dystonia [Recovered/Resolved with Sequelae]

NARRATIVE: CASE EVENT DATE: 20160629
